FAERS Safety Report 5822222-5 (Version None)
Quarter: 2008Q3

REPORT INFORMATION
  Report Type: 
  Country: None (occurrence: None)
  Receive Date: 20080725
  Receipt Date: 20080530
  Transmission Date: 20090109
  Serious: No
  Sender: FDA-Public Use
  Company Number: US-AMGEN-KDL278406

PATIENT
  Sex: Female
  Weight: 60.8 kg

DRUGS (4)
  1. PROCRIT [Suspect]
     Indication: ANAEMIA OF MALIGNANT DISEASE
     Dates: start: 20070923, end: 20080125
  2. ARANESP [Suspect]
     Dates: start: 20060327, end: 20070327
  3. IRON [Concomitant]
     Route: 042
  4. OXYGEN [Concomitant]

REACTIONS (6)
  - BONE PAIN [None]
  - CHEST PAIN [None]
  - COSTOCHONDRITIS [None]
  - DYSPNOEA [None]
  - KNEE ARTHROPLASTY [None]
  - SPINAL COMPRESSION FRACTURE [None]
